FAERS Safety Report 9637685 (Version 3)
Quarter: 2014Q1

REPORT INFORMATION
  Report Type: Spontaneous
  Country: JP (occurrence: JP)
  Receive Date: 20131022
  Receipt Date: 20140203
  Transmission Date: 20141002
  Serious: Yes (Death, Life-Threatening, Hospitalization)
  Sender: FDA-Public Use
  Company Number: JP-CELGENEUS-087-50794-13103602

PATIENT
  Age: 82 Year
  Sex: Male
  Weight: 56 kg

DRUGS (4)
  1. VIDAZA [Suspect]
     Indication: MYELODYSPLASTIC SYNDROME
     Dosage: 100 MILLIGRAM
     Route: 041
     Dates: start: 20130701, end: 20130705
  2. VIDAZA [Suspect]
     Dosage: 100 MILLIGRAM
     Route: 041
     Dates: start: 20130729, end: 20130802
  3. ZOSYN [Concomitant]
     Indication: PRODUCT USED FOR UNKNOWN INDICATION
     Route: 065
     Dates: start: 20130829, end: 20130912
  4. AMIKACIN SULFATE [Concomitant]
     Indication: PRODUCT USED FOR UNKNOWN INDICATION
     Route: 065
     Dates: start: 20130902, end: 20130915

REACTIONS (6)
  - Cardiac failure [Fatal]
  - Pulmonary haemorrhage [Fatal]
  - Platelet count decreased [Not Recovered/Not Resolved]
  - Pneumonia [Recovered/Resolved]
  - Anaemia [Not Recovered/Not Resolved]
  - Cardiac failure [Recovered/Resolved]
